FAERS Safety Report 15384273 (Version 1)
Quarter: 2018Q3

REPORT INFORMATION
  Report Type: Spontaneous
  Country: US (occurrence: US)
  Receive Date: 20180914
  Receipt Date: 20180914
  Transmission Date: 20181010
  Serious: Yes (Death)
  Sender: FDA-Public Use
  Company Number: US-ROCHE-2184931

PATIENT
  Age: 80 Year
  Sex: Female

DRUGS (6)
  1. AMITRIPTYLINE HCL [Concomitant]
     Active Substance: AMITRIPTYLINE
     Dosage: ONGOING: UNKNOWN
     Route: 065
  2. ESBRIET [Suspect]
     Active Substance: PIRFENIDONE
     Indication: IDIOPATHIC PULMONARY FIBROSIS
     Dosage: ONGOING: UNKNOWN
     Route: 048
     Dates: start: 20171002
  3. ASPIRIN. [Concomitant]
     Active Substance: ASPIRIN
     Dosage: ONGOING: UNKNOWN
     Route: 065
  4. CLARITIN [Concomitant]
     Active Substance: LORATADINE
     Dosage: ONGOING: UNKNOWN
     Route: 065
  5. DIOVAN [Concomitant]
     Active Substance: VALSARTAN
     Dosage: ONGOING: UNKNOWN
     Route: 065
  6. ANORO ELLIPTA [Concomitant]
     Active Substance: UMECLIDINIUM BROMIDE\VILANTEROL TRIFENATATE
     Dosage: ONGOING: UNKNOWN
     Route: 065

REACTIONS (1)
  - Death [Fatal]

NARRATIVE: CASE EVENT DATE: 20180819
